FAERS Safety Report 20469535 (Version 1)
Quarter: 2022Q1

REPORT INFORMATION
  Report Type: Spontaneous
  Country: US (occurrence: None)
  Receive Date: 20220213
  Receipt Date: 20220213
  Transmission Date: 20220424
  Serious: Yes (Other)
  Sender: FDA-Public Use
  Company Number: None

PATIENT
  Age: 18 Year
  Sex: Female

DRUGS (2)
  1. REMICADE [Suspect]
     Active Substance: INFLIXIMAB
     Dates: start: 20220126, end: 20220126
  2. REMICADE [Suspect]
     Active Substance: INFLIXIMAB
     Dates: start: 20220126, end: 20220126

REACTIONS (8)
  - Dyspnoea [None]
  - Chest discomfort [None]
  - Flushing [None]
  - Abdominal pain [None]
  - Nausea [None]
  - Diarrhoea [None]
  - Vomiting [None]
  - Infusion related reaction [None]

NARRATIVE: CASE EVENT DATE: 20220126
